FAERS Safety Report 8397761-6 (Version None)
Quarter: 2012Q2

REPORT INFORMATION
  Report Type: 
  Country: None (occurrence: None)
  Receive Date: 20120531
  Receipt Date: 20120525
  Transmission Date: 20120825
  Serious: Yes (Life-Threatening, Other)
  Sender: FDA-Public Use
  Company Number: RU-BAYER-2011-099497

PATIENT
  Age: 22 Year
  Sex: Male
  Weight: 62 kg

DRUGS (4)
  1. SORAFENIB [Suspect]
     Indication: HEPATIC NEOPLASM MALIGNANT
     Dosage: UNK
     Route: 048
     Dates: start: 20110824, end: 20111005
  2. ANTITHROMBOTIC AGENTS [Concomitant]
  3. MONOCLONAL ANTIBODIES [Suspect]
     Indication: HEPATIC NEOPLASM MALIGNANT
     Dosage: UNK
  4. ASPIRIN [Concomitant]
     Dosage: 100 MG, UNK

REACTIONS (5)
  - HYPERCOAGULATION [None]
  - CEREBRAL ISCHAEMIA [None]
  - APHASIA [None]
  - PULMONARY EMBOLISM [None]
  - PARESIS [None]
